FAERS Safety Report 8724985 (Version 2)
Quarter: 2015Q2

REPORT INFORMATION
  Report Type: Report from Study
  Country: US (occurrence: US)
  Receive Date: 20120815
  Receipt Date: 20150625
  Transmission Date: 20150821
  Serious: Yes (Hospitalization)
  Sender: FDA-Public Use
  Company Number: US-ROCHE-1101377

PATIENT
  Sex: Female

DRUGS (4)
  1. ACTIVASE [Suspect]
     Active Substance: ALTEPLASE
     Indication: ACUTE MYOCARDIAL INFARCTION
     Dosage: 10 INITALLY, 30 MG FIRST TIME, 30 MG SECOND TIME AND LAST 30 MG AFTER 2 HOURS
     Route: 040
  2. LIDOCAINE. [Concomitant]
     Active Substance: LIDOCAINE
     Dosage: 4 MG PER MINUTE
     Route: 040
  3. POTASSIUM CHLORIDE. [Concomitant]
     Active Substance: POTASSIUM CHLORIDE
     Route: 042
  4. ASA SUPPOSITORY [Concomitant]
     Route: 065

REACTIONS (1)
  - Pain [Not Recovered/Not Resolved]
